FAERS Safety Report 24129023 (Version 3)
Quarter: 2024Q4

REPORT INFORMATION
  Report Type: Spontaneous
  Country: FR (occurrence: FR)
  Receive Date: 20240723
  Receipt Date: 20241204
  Transmission Date: 20250114
  Serious: No
  Sender: PFIZER
  Company Number: FR-PFIZER INC-202400209495

PATIENT
  Age: 5 Month
  Sex: Female

DRUGS (1)
  1. NEISVAC-C [Suspect]
     Active Substance: MENINGOCOCCAL POLYSACCHARIDE VACCINE C
     Indication: Immunisation
     Dosage: DOSE 1, SINGLE
     Dates: start: 20240629, end: 20240629

REACTIONS (2)
  - Underdose [Unknown]
  - Device connection issue [Unknown]

NARRATIVE: CASE EVENT DATE: 20240629
